FAERS Safety Report 23361385 (Version 1)
Quarter: 2024Q1

REPORT INFORMATION
  Report Type: Spontaneous
  Country: US (occurrence: US)
  Receive Date: 20240103
  Receipt Date: 20240103
  Transmission Date: 20240410
  Serious: No
  Sender: FDA-Public Use
  Company Number: US-JNJFOC-20231248652

PATIENT
  Age: 80 Year
  Sex: Male

DRUGS (10)
  1. ZYTIGA [Suspect]
     Active Substance: ABIRATERONE ACETATE
     Indication: Product used for unknown indication
     Route: 048
  2. ORGOVYX [Suspect]
     Active Substance: RELUGOLIX
     Indication: Prostate cancer
     Route: 048
     Dates: start: 20230824
  3. ORGOVYX [Suspect]
     Active Substance: RELUGOLIX
     Route: 048
     Dates: start: 20230825
  4. ORGOVYX [Suspect]
     Active Substance: RELUGOLIX
     Route: 065
  5. ORGOVYX [Suspect]
     Active Substance: RELUGOLIX
     Route: 065
  6. ORGOVYX [Suspect]
     Active Substance: RELUGOLIX
     Route: 065
  7. ORGOVYX [Suspect]
     Active Substance: RELUGOLIX
     Route: 065
  8. XTANDI [Concomitant]
     Active Substance: ENZALUTAMIDE
     Indication: Prostate cancer
  9. LUPRON [Concomitant]
     Active Substance: LEUPROLIDE ACETATE
  10. IRON [Concomitant]
     Active Substance: IRON

REACTIONS (6)
  - Blood pressure increased [Unknown]
  - Decreased activity [Recovering/Resolving]
  - Hot flush [Not Recovered/Not Resolved]
  - Asthenia [Unknown]
  - Fatigue [Unknown]
  - Iron deficiency [Unknown]
